FAERS Safety Report 9859472 (Version 2)
Quarter: 2014Q1

REPORT INFORMATION
  Report Type: Report from Study
  Country: US (occurrence: US)
  Receive Date: 20140131
  Receipt Date: 20140131
  Transmission Date: 20141002
  Serious: Yes (Hospitalization)
  Sender: FDA-Public Use
  Company Number: US-BAYER-2014-002311

PATIENT
  Age: 70 Year
  Sex: Male
  Weight: 93.8 kg

DRUGS (14)
  1. RIOCIGUAT (GUANYLATE CYCLASE STIMULATOR) [Suspect]
     Dosage: 2.0 MG, TID
     Dates: start: 20130112
  2. ADVAIR DISKUS [Concomitant]
     Indication: CHRONIC OBSTRUCTIVE PULMONARY DISEASE
     Dosage: 1 PUFF(S), BID  250/50
     Route: 055
     Dates: start: 20131010
  3. COUMADIN [Concomitant]
     Indication: PULMONARY EMBOLISM
     Dosage: 6 MG
     Route: 048
     Dates: start: 200801
  4. SPIRIVA [Concomitant]
     Indication: CHRONIC OBSTRUCTIVE PULMONARY DISEASE
     Dosage: 18 MCG
     Route: 055
     Dates: start: 200008
  5. OXYGEN [Concomitant]
     Indication: CHRONIC OBSTRUCTIVE PULMONARY DISEASE
     Dosage: 4 L NASAL CANNULA
     Route: 055
     Dates: start: 200007
  6. ALBUTEROL SULFATE [Concomitant]
     Indication: CHRONIC OBSTRUCTIVE PULMONARY DISEASE
     Dosage: 2.5 MG / ML / 0.83%
     Route: 055
     Dates: start: 200008
  7. CARDIZEM [Concomitant]
     Indication: ATRIAL FLUTTER
     Dosage: 90 MG
     Route: 048
     Dates: start: 201301, end: 20131010
  8. LASIX [Concomitant]
     Indication: PULMONARY HYPERTENSION
     Dosage: 80 MG
     Route: 048
     Dates: start: 201301, end: 20131010
  9. LASIX [Concomitant]
     Indication: HYPERTENSION
     Dosage: 40 MG
     Route: 048
     Dates: start: 20131010
  10. ZAROXOLYN [Concomitant]
     Indication: PULMONARY HYPERTENSION
     Dosage: 5 MG
     Route: 048
     Dates: start: 20130926
  11. ZAROXOLYN [Concomitant]
     Indication: HYPERTENSION
  12. MYLANTA AR ACID REDUCER [Concomitant]
     Indication: DYSPEPSIA
     Dosage: 2 TSP PRN
     Route: 048
     Dates: start: 20131111
  13. KEPPRA [Concomitant]
     Indication: CONVULSION
     Dosage: 1000 MG, BID
     Route: 048
     Dates: start: 200805
  14. ALLOPURINOL [Concomitant]
     Indication: GOUT
     Dosage: 300 MG
     Route: 048
     Dates: start: 201308

REACTIONS (1)
  - Syncope [Recovered/Resolved]
